FAERS Safety Report 17263424 (Version 1)
Quarter: 2020Q1

REPORT INFORMATION
  Report Type: Spontaneous
  Country: US (occurrence: US)
  Receive Date: 20200112
  Receipt Date: 20200112
  Transmission Date: 20200409
  Serious: Yes (Other)
  Sender: FDA-Public Use
  Company Number: None

PATIENT
  Age: 82 Year
  Sex: Female
  Weight: 65.7 kg

DRUGS (1)
  1. DULOXETINE  60 MG [Suspect]
     Active Substance: DULOXETINE
     Indication: PRODUCT USED FOR UNKNOWN INDICATION
     Route: 048
     Dates: end: 20190406

REACTIONS (21)
  - General physical health deterioration [None]
  - Fall [None]
  - Ageusia [None]
  - Skin ulcer [None]
  - Rash [None]
  - Dementia [None]
  - Blood glucose increased [None]
  - Skin atrophy [None]
  - Oedema peripheral [None]
  - Product prescribing issue [None]
  - Insomnia [None]
  - Serotonin syndrome [None]
  - Skin exfoliation [None]
  - Facial bones fracture [None]
  - Increased tendency to bruise [None]
  - Arthralgia [None]
  - Agitation [None]
  - Memory impairment [None]
  - Blister [None]
  - Loss of consciousness [None]
  - Decreased appetite [None]
